FAERS Safety Report 16996335 (Version 2)
Quarter: 2019Q4

REPORT INFORMATION
  Report Type: Spontaneous
  Country: CN (occurrence: CN)
  Receive Date: 20191105
  Receipt Date: 20191114
  Transmission Date: 20200122
  Serious: Yes (Hospitalization)
  Sender: FDA-Public Use
  Company Number: CN-PFIZER INC-2019470091

PATIENT
  Age: 70 Year
  Sex: Male
  Weight: 60 kg

DRUGS (13)
  1. SOLU-MEDROL [Suspect]
     Active Substance: METHYLPREDNISOLONE SODIUM SUCCINATE
     Dosage: 500 MG, 1X/DAY
     Route: 041
     Dates: start: 20191015, end: 20191016
  2. ARCOXIA [Concomitant]
     Active Substance: ETORICOXIB
     Indication: ANALGESIC THERAPY
     Dosage: 60 MG, 1X/DAY (AFTER-DINNER SERVICE)
     Route: 048
     Dates: start: 20191009, end: 20191015
  3. NORMAL SALINE [Concomitant]
     Active Substance: SODIUM CHLORIDE
     Indication: THERAPEUTIC PROCEDURE
     Dosage: 100 ML, UNK
     Route: 041
     Dates: start: 20191002, end: 20191018
  4. MUCOSTA [Concomitant]
     Active Substance: REBAMIPIDE
     Indication: THERAPEUTIC PROCEDURE
     Dosage: 0.1 G, 3X/DAY (BEFORE MEALS)
     Route: 048
     Dates: start: 20191001, end: 20191019
  5. MI LI [Concomitant]
     Indication: ANALGESIC THERAPY
     Dosage: 0.3 G, 3X/DAY (AFTER MEALS)
     Route: 048
     Dates: start: 20191009, end: 20191019
  6. SOLU-MEDROL [Suspect]
     Active Substance: METHYLPREDNISOLONE SODIUM SUCCINATE
     Dosage: 250 MG, 1X/DAY
     Route: 041
     Dates: start: 20191017, end: 20191018
  7. DIAMICRON [Concomitant]
     Active Substance: GLICLAZIDE
     Indication: BLOOD GLUCOSE ABNORMAL
     Dosage: 60 MG, 1X/DAY
     Route: 048
     Dates: start: 20191009, end: 20191019
  8. SOLU-MEDROL [Suspect]
     Active Substance: METHYLPREDNISOLONE SODIUM SUCCINATE
     Indication: ANTIINFLAMMATORY THERAPY
     Dosage: 40 MG, 1X/DAY
     Route: 041
     Dates: start: 20191002, end: 20191009
  9. SOLU-MEDROL [Suspect]
     Active Substance: METHYLPREDNISOLONE SODIUM SUCCINATE
     Dosage: 80 MG, 1X/DAY
     Route: 041
     Dates: start: 20191003, end: 20191009
  10. LOSEC [OMEPRAZOLE SODIUM] [Concomitant]
     Active Substance: OMEPRAZOLE SODIUM
     Indication: THERAPEUTIC PROCEDURE
     Dosage: 40 MG, 1X/DAY (WITH NS 100 ML IVGTT QD)
     Route: 041
     Dates: start: 20191002, end: 20191018
  11. SOLU-MEDROL [Suspect]
     Active Substance: METHYLPREDNISOLONE SODIUM SUCCINATE
     Dosage: 40 MG, 1X/DAY
     Route: 041
     Dates: start: 20191010, end: 20191014
  12. LANG DI [Concomitant]
     Indication: MINERAL SUPPLEMENTATION
     Dosage: 0.5 G, 2X/DAY
     Route: 048
     Dates: start: 20191002, end: 20191019
  13. ROCALTROL [Concomitant]
     Active Substance: CALCITRIOL
     Indication: THERAPEUTIC PROCEDURE
     Dosage: 0.25 UG, 1X/DAY (AFTER MEAL)
     Route: 048
     Dates: start: 20191002, end: 20191009

REACTIONS (1)
  - Transaminases increased [Recovering/Resolving]

NARRATIVE: CASE EVENT DATE: 20191018
